FAERS Safety Report 7096125 (Version 2)
Quarter: 2012Q4

REPORT INFORMATION
  Report Type: 
  Country: CA (occurrence: None)
  Receive Date: 20090817
  Receipt Date: 20120830
  Transmission Date: 20130627
  Serious: Yes (Other)
  Sender: FDA-Public Use
  Company Number: 2009AP003185

PATIENT
  Age: 56 Year
  Sex: Female

DRUGS (9)
  1. QUETIAPINE FUMARATE [Suspect]
     Indication: SCHIZOPHRENIA
     Dosage: 900 MG; HS; 750 MG; QD; 900 MG;HS
  2. DIAZEPAM [Suspect]
     Indication: TINGLING SENSATION
     Dosage: 10 MG; HS;
  3. DIAZEPAM [Suspect]
     Indication: AKATHISIA
     Dosage: 10 MG; HS;
  4. CLONAZEPAM [Suspect]
     Indication: SLEEP WALKING
     Dosage: 0.5 MG; HS
  5. SERTRALINE HYDROCHLORIDE [Suspect]
     Dosage: 150 MG; QD
  6. CLOZAPINE [Suspect]
  7. PHENYTOIN [Suspect]
     Dosage: 300 MG; QD
  8. ANTIPSYCHOTICS (ANTIPSYCHOTICS) [Concomitant]
  9. CLOZAPINE (CLOZAPINE) [Concomitant]

REACTIONS (11)
  - Dystonia [None]
  - Hypotension [None]
  - Somnambulism [None]
  - Akathisia [None]
  - Paraesthesia [None]
  - Speech disorder [None]
  - Temporomandibular joint syndrome [None]
  - Off label use [None]
  - Tardive dyskinesia [None]
  - Agranulocytosis [None]
  - Death of relative [None]
